FAERS Safety Report 18338543 (Version 1)
Quarter: 2020Q3

REPORT INFORMATION
  Report Type: Spontaneous
  Country: US (occurrence: US)
  Receive Date: 20200930
  Receipt Date: 20200930
  Transmission Date: 20201103
  Serious: Yes (Hospitalization)
  Sender: FDA-Public Use
  Company Number: None

PATIENT
  Age: 88 Year
  Sex: Male
  Weight: 76 kg

DRUGS (2)
  1. RIFAMPIN (RIFAMPIN 300MG CAP) [Suspect]
     Active Substance: RIFAMPIN
     Indication: CARDIOVASCULAR DISORDER
     Route: 048
     Dates: start: 20200608, end: 20200617
  2. RIFAMPIN (RIFAMPIN 300MG CAP) [Suspect]
     Active Substance: RIFAMPIN
     Indication: SEPSIS
     Route: 048
     Dates: start: 20200608, end: 20200617

REACTIONS (6)
  - Decreased appetite [None]
  - Skin discolouration [None]
  - General physical health deterioration [None]
  - Hepatic enzyme increased [None]
  - Hepatic failure [None]
  - Jaundice [None]

NARRATIVE: CASE EVENT DATE: 20200609
